FAERS Safety Report 5915667-6 (Version None)
Quarter: 2008Q4

REPORT INFORMATION
  Report Type: 
  Country: None (occurrence: None)
  Receive Date: 20081010
  Receipt Date: 20081002
  Transmission Date: 20090506
  Serious: Yes (Other)
  Sender: FDA-Public Use
  Company Number: US-PFIZER INC-2008046730

PATIENT
  Sex: Female
  Weight: 63.5 kg

DRUGS (9)
  1. LIPITOR [Suspect]
     Indication: BLOOD CHOLESTEROL INCREASED
     Route: 048
     Dates: start: 19980101
  2. LISINOPRIL AND HYDROCHLOROTHIAZIDE [Suspect]
     Dates: start: 20080101
  3. LISINOPRIL [Concomitant]
     Indication: HYPERTENSION
  4. ZETIA [Concomitant]
     Route: 048
  5. AMARYL [Concomitant]
     Indication: DIABETES MELLITUS
  6. BENADRYL [Concomitant]
     Route: 048
     Dates: start: 20020101
  7. ESTRACE [Concomitant]
     Route: 048
  8. ACETYLSALICYLIC ACID SRT [Concomitant]
     Route: 048
  9. MULTI-VITAMINS [Concomitant]
     Route: 048

REACTIONS (9)
  - ARTHROPATHY [None]
  - BLOOD CHOLESTEROL INCREASED [None]
  - BLOOD TRIGLYCERIDES INCREASED [None]
  - BURNING SENSATION [None]
  - DIABETES MELLITUS [None]
  - FOOD AVERSION [None]
  - KNEE ARTHROPLASTY [None]
  - MUSCLE SPASMS [None]
  - NAUSEA [None]
